FAERS Safety Report 4737424-9 (Version None)
Quarter: 2005Q3

REPORT INFORMATION
  Report Type: 
  Country: None (occurrence: None)
  Receive Date: 20050803
  Receipt Date: 20050707
  Transmission Date: 20060218
  Serious: Yes (Other)
  Sender: FDA-Public Use
  Company Number: JP_050707033

PATIENT
  Age: 76 Year
  Sex: Female

DRUGS (7)
  1. EVISTA [Suspect]
     Indication: OSTEOPOROSIS POSTMENOPAUSAL
     Dosage: 60 MG/1 DAY
     Dates: start: 20050509, end: 20050523
  2. ONEALFA (ALFACALCIDOL) [Concomitant]
  3. BLOPRESS (CANDESARTAN CILEXETIL) [Concomitant]
  4. LASIX [Concomitant]
  5. BASEN (VOGLIBOSE) [Concomitant]
  6. NEOLAMIN 3B [Concomitant]
  7. ELCITONIN (ELCATONIN) [Concomitant]

REACTIONS (1)
  - BREAST CANCER FEMALE [None]
